FAERS Safety Report 7342079-3 (Version None)
Quarter: 2011Q1

REPORT INFORMATION
  Report Type: 
  Country: None (occurrence: None)
  Receive Date: 20110309
  Receipt Date: 20101101
  Transmission Date: 20110831
  Serious: Yes (Death, Other)
  Sender: FDA-Public Use
  Company Number: US-ASTRAZENECA-2011SE12323

PATIENT
  Age: 76 Year
  Sex: Male
  Weight: 45.3 kg

DRUGS (7)
  1. MEROPEN [Suspect]
     Indication: PNEUMONIA
     Route: 042
     Dates: start: 20080514, end: 20080523
  2. ZYVOX [Suspect]
     Indication: PNEUMONIA
     Route: 042
     Dates: start: 20080514, end: 20080529
  3. VANCOMYCIN HYDROCHLORIDE [Concomitant]
     Indication: PNEUMONIA
     Route: 042
  4. SOLU-CORTEF [Concomitant]
     Dates: start: 20080514, end: 20080528
  5. LANDIOLOL HYDROCHLORIDE [Concomitant]
  6. BAKTAR [Concomitant]
     Dates: start: 20080525
  7. GASTER [Concomitant]
     Indication: GASTROINTESTINAL HAEMORRHAGE
     Route: 042

REACTIONS (3)
  - THROMBOCYTOPENIA [None]
  - PNEUMONIA [None]
  - HYPERNATRAEMIA [None]
